FAERS Safety Report 19072146 (Version 1)
Quarter: 2021Q1

REPORT INFORMATION
  Report Type: Spontaneous
  Country: GB (occurrence: GB)
  Receive Date: 20210330
  Receipt Date: 20210330
  Transmission Date: 20210420
  Serious: Yes (Other)
  Sender: FDA-Public Use
  Company Number: GB-MYLANLABS-2021M1018445

PATIENT
  Age: 67 Year
  Sex: Female

DRUGS (4)
  1. FLUCLOXACILLIN [Suspect]
     Active Substance: FLUCLOXACILLIN
     Indication: WOUND INFECTION BACTERIAL
     Dosage: 8 GRAM (OVER 24 HOURS)
     Route: 042
     Dates: start: 20210119, end: 20210316
  2. INDAPAMIDE. [Concomitant]
     Active Substance: INDAPAMIDE
     Indication: ILL-DEFINED DISORDER
     Dosage: UNK
     Dates: end: 20210304
  3. RIFAMPICIN [Suspect]
     Active Substance: RIFAMPIN
     Indication: WOUND INFECTION BACTERIAL
     Dosage: 600 MILLIGRAM BID (MORNING AND NIGHT)
     Route: 048
     Dates: start: 20210119, end: 20210316
  4. PARACETAMOL [Concomitant]
     Active Substance: ACETAMINOPHEN
     Indication: ILL-DEFINED DISORDER
     Dosage: UNK

REACTIONS (2)
  - Hyponatraemia [Recovered/Resolved]
  - Hypokalaemia [Recovered/Resolved]

NARRATIVE: CASE EVENT DATE: 20210301
